FAERS Safety Report 18511260 (Version 1)
Quarter: 2020Q4

REPORT INFORMATION
  Report Type: Spontaneous
  Country: US (occurrence: US)
  Receive Date: 20201117
  Receipt Date: 20201117
  Transmission Date: 20210114
  Serious: Yes (Death)
  Sender: FDA-Public Use
  Company Number: None

PATIENT
  Age: 64 Year
  Sex: Female

DRUGS (11)
  1. FOLIC ACID. [Concomitant]
     Active Substance: FOLIC ACID
  2. ACYCLOVIR. [Concomitant]
     Active Substance: ACYCLOVIR
  3. XARELTO [Concomitant]
     Active Substance: RIVAROXABAN
  4. FEROSUL [Concomitant]
     Active Substance: FERROUS SULFATE
  5. UDENYCA [Suspect]
     Active Substance: PEGFILGRASTIM-CBQV
     Indication: COLONY STIMULATING FACTOR THERAPY
     Dosage: ?          OTHER FREQUENCY:EVERY 28 DAYS;?
     Route: 058
     Dates: start: 20200905, end: 20201110
  6. BACTRIM [Concomitant]
     Active Substance: SULFAMETHOXAZOLE\TRIMETHOPRIM
  7. DEXAMETHASONE. [Concomitant]
     Active Substance: DEXAMETHASONE
  8. ATORVASTATIN [Concomitant]
     Active Substance: ATORVASTATIN
  9. THALOMID [Concomitant]
     Active Substance: THALIDOMIDE
  10. METFORMIN [Concomitant]
     Active Substance: METFORMIN HYDROCHLORIDE
  11. GABAPENTIN. [Concomitant]
     Active Substance: GABAPENTIN

REACTIONS (1)
  - Death [None]

NARRATIVE: CASE EVENT DATE: 20201110
